FAERS Safety Report 23501283 (Version 1)
Quarter: 2024Q1

REPORT INFORMATION
  Report Type: Spontaneous
  Country: FR (occurrence: FR)
  Receive Date: 20240208
  Receipt Date: 20240208
  Transmission Date: 20240410
  Serious: Yes (Death)
  Sender: FDA-Public Use
  Company Number: None

PATIENT
  Age: 76 Year
  Sex: Male
  Weight: 65 kg

DRUGS (14)
  1. CARBOPLATIN [Suspect]
     Active Substance: CARBOPLATIN
     Indication: Cholangiocarcinoma
     Dosage: C1D8
     Route: 042
     Dates: start: 20231226, end: 20231226
  2. CARBOPLATIN [Suspect]
     Active Substance: CARBOPLATIN
     Dosage: C1D1
     Route: 042
     Dates: start: 20231218, end: 20231218
  3. GEMCITABINE [Suspect]
     Active Substance: GEMCITABINE
     Indication: Cholangiocarcinoma
     Dosage: C1J1?1800 MG?INTRAVENOUS?ROA-20045000
     Dates: start: 20231218, end: 20231218
  4. GEMCITABINE [Suspect]
     Active Substance: GEMCITABINE
     Dosage: C1J8?1800 MG?INTRAVENOUS?ROA-20045000
     Dates: start: 20231226, end: 20231226
  5. IMFINZI [Suspect]
     Active Substance: DURVALUMAB
     Indication: Cholangiocarcinoma
     Dosage: C1J1?1500 MG?INTRAVENOUS?ROA-20045000
     Dates: start: 20231218, end: 20231218
  6. FEBUXOSTAT [Concomitant]
     Active Substance: FEBUXOSTAT
     Indication: Product used for unknown indication
     Dosage: 80 MG
  7. APREPITANT [Concomitant]
     Active Substance: APREPITANT
     Indication: Product used for unknown indication
  8. KARDEGIC 75 mg, powder for oral solution in sachet [Concomitant]
     Indication: Product used for unknown indication
     Dosage: 75 MG
  9. OXYCONTIN LP 30 mg, extended-release film-coated tablet [Concomitant]
     Indication: Product used for unknown indication
     Dosage: 60 MG
  10. LISINOPRIL [Concomitant]
     Active Substance: LISINOPRIL
     Indication: Product used for unknown indication
     Dosage: 10 MG
  11. ATORVASTATIN [Concomitant]
     Active Substance: ATORVASTATIN
     Indication: Product used for unknown indication
     Dosage: 10 MG
  12. OXYCODONE HYDROCHLORIDE [Concomitant]
     Active Substance: OXYCODONE HYDROCHLORIDE
     Indication: Product used for unknown indication
     Dosage: 10 MG
  13. FUROSEMIDE [Concomitant]
     Active Substance: FUROSEMIDE
     Indication: Product used for unknown indication
     Dosage: 40 MG
  14. CARVEDILOL [Concomitant]
     Active Substance: CARVEDILOL
     Indication: Product used for unknown indication
     Dosage: 25 MG

REACTIONS (2)
  - Agranulocytosis [Fatal]
  - Colitis [Fatal]

NARRATIVE: CASE EVENT DATE: 20231229
